FAERS Safety Report 4277291-3 (Version None)
Quarter: 2004Q1

REPORT INFORMATION
  Report Type: 
  Country: None (occurrence: None)
  Receive Date: 20040120
  Receipt Date: 20040109
  Transmission Date: 20041129
  Serious: Yes (Other)
  Sender: FDA-Public Use
  Company Number: UK051351

PATIENT
  Age: 75 Year
  Sex: Female
  Weight: 80 kg

DRUGS (1)
  1. NEUPOGEN [Suspect]
     Dosage: 400 MCG, TWICE A DAY, SC
     Route: 058
     Dates: start: 20030820, end: 20030822

REACTIONS (3)
  - ELECTROCARDIOGRAM ST SEGMENT ELEVATION [None]
  - PERICARDIAL EFFUSION [None]
  - PERICARDITIS [None]
